FAERS Safety Report 7495239-5 (Version None)
Quarter: 2011Q2

REPORT INFORMATION
  Report Type: 
  Country: None (occurrence: None)
  Receive Date: 20110522
  Receipt Date: 20110509
  Transmission Date: 20111010
  Serious: Yes (Hospitalization, Other)
  Sender: FDA-Public Use
  Company Number: US-ELI_LILLY_AND_COMPANY-US201105000830

PATIENT
  Sex: Female

DRUGS (2)
  1. FORTEO [Suspect]
  2. FORTEO [Suspect]
     Indication: OSTEOPOROSIS
     Dosage: UNK, UNKNOWN
     Dates: start: 20110427

REACTIONS (3)
  - HYPOAESTHESIA [None]
  - BACK PAIN [None]
  - STENT PLACEMENT [None]
